FAERS Safety Report 16186496 (Version 1)
Quarter: 2019Q2

REPORT INFORMATION
  Report Type: Spontaneous
  Country: US (occurrence: US)
  Receive Date: 20190411
  Receipt Date: 20190411
  Transmission Date: 20190711
  Serious: Yes (Other)
  Sender: FDA-Public Use
  Company Number: US-BAYER-2019-069320

PATIENT
  Age: 25 Year
  Sex: Female

DRUGS (1)
  1. SKYLA [Suspect]
     Active Substance: LEVONORGESTREL
     Indication: INTRAUTERINE CONTRACEPTION
     Dosage: 14 MCG/24HR, CONT
     Route: 015
     Dates: start: 201803, end: 201811

REACTIONS (4)
  - Brain neoplasm [Recovered/Resolved]
  - Migraine [Recovered/Resolved]
  - Alopecia [Recovered/Resolved with Sequelae]
  - Visual impairment [Recovered/Resolved]

NARRATIVE: CASE EVENT DATE: 201804
